FAERS Safety Report 6002031-7 (Version None)
Quarter: 2008Q4

REPORT INFORMATION
  Report Type: 
  Country: None (occurrence: None)
  Receive Date: 20081215
  Receipt Date: 20081211
  Transmission Date: 20090506
  Serious: Yes (Other)
  Sender: FDA-Public Use
  Company Number: GB-BAUSCH-2008BL005230

PATIENT
  Age: 74 Year
  Sex: Male

DRUGS (4)
  1. PREDNISOLONE [Suspect]
     Indication: IMMUNOSUPPRESSION
     Route: 048
  2. PREDNISOLONE [Suspect]
     Indication: ORGAN TRANSPLANT
     Route: 048
  3. AZATHIOPRINE [Suspect]
     Indication: IMMUNOSUPPRESSION
     Route: 048
  4. AZATHIOPRINE [Suspect]
     Indication: ORGAN TRANSPLANT
     Route: 048

REACTIONS (1)
  - BASAL CELL CARCINOMA [None]
